FAERS Safety Report 4864717-7 (Version None)
Quarter: 2005Q4

REPORT INFORMATION
  Report Type: 
  Country: None (occurrence: None)
  Receive Date: 20051222
  Receipt Date: 20050304
  Transmission Date: 20060501
  Serious: Yes (Hospitalization)
  Sender: FDA-Public Use
  Company Number: US-MERCK-0503USA00977

PATIENT
  Age: 41 Year
  Sex: Male

DRUGS (3)
  1. VIOXX [Suspect]
     Indication: PAIN
     Route: 048
     Dates: start: 20030101
  2. ZYRTEC [Concomitant]
     Route: 065
  3. DIOVAN [Concomitant]
     Route: 065

REACTIONS (5)
  - ACUTE CORONARY SYNDROME [None]
  - ADVERSE EVENT [None]
  - CARDIOMYOPATHY [None]
  - EJECTION FRACTION DECREASED [None]
  - STOMACH DISCOMFORT [None]
